FAERS Safety Report 4889634-8 (Version None)
Quarter: 2006Q1

REPORT INFORMATION
  Report Type: 
  Country: None (occurrence: None)
  Receive Date: 20060124
  Receipt Date: 20060111
  Transmission Date: 20060701
  Serious: Yes (Other)
  Sender: FDA-Public Use
  Company Number: JP-JPN-A200600054

PATIENT
  Age: 24 Year
  Sex: Female
  Weight: 53 kg

DRUGS (15)
  1. PAXIL [Suspect]
     Indication: DEPRESSION
     Dosage: 10MG VARIABLE DOSE
     Route: 048
     Dates: start: 20030122
  2. ANEXATE [Suspect]
     Dosage: .5MG PER DAY
     Route: 042
     Dates: start: 20060108, end: 20060108
  3. VERAPAMIL [Concomitant]
     Indication: TACHYCARDIA
     Dosage: 120MG PER DAY
     Route: 048
     Dates: start: 20021003
  4. TRYPTANOL [Concomitant]
     Indication: HYPERVENTILATION
     Route: 048
     Dates: start: 20021003
  5. IMIGRAN [Concomitant]
     Indication: HEADACHE
     Route: 048
  6. GASMOTIN [Concomitant]
     Dosage: 15MG PER DAY
     Route: 048
     Dates: start: 20030618, end: 20031213
  7. VOLTAREN [Concomitant]
     Indication: HEADACHE
     Dosage: 50MG PER DAY
     Route: 048
     Dates: start: 20030709
  8. SOLANAX [Concomitant]
     Indication: HYPERVENTILATION
     Dosage: 1.2MG PER DAY
     Route: 048
     Dates: start: 20031022
  9. NAUZELIN [Concomitant]
     Indication: VOMITING
     Dosage: 15MG PER DAY
     Route: 048
     Dates: start: 20031213
  10. DOGMATYL [Concomitant]
     Indication: SCHIZOPHRENIA
     Dosage: 100MG PER DAY
     Route: 048
     Dates: start: 20040526
  11. ROHYPNOL [Concomitant]
     Indication: INSOMNIA
     Dosage: 4MG PER DAY
     Route: 048
     Dates: start: 20040621
  12. RIVOTRIL [Concomitant]
     Indication: SCHIZOPHRENIA
     Dosage: 1MG PER DAY
     Route: 048
     Dates: start: 20041027
  13. HIRNAMIN [Concomitant]
     Indication: SCHIZOPHRENIA
     Dosage: 75MG PER DAY
     Route: 048
     Dates: start: 20041222
  14. HALCION [Concomitant]
     Indication: INSOMNIA
     Dosage: .25MG PER DAY
     Route: 048
     Dates: start: 20050105
  15. TEGRETOL [Concomitant]
     Indication: ESSENTIAL TREMOR
     Dosage: 400MG PER DAY
     Route: 048
     Dates: start: 20050720

REACTIONS (3)
  - GRAND MAL CONVULSION [None]
  - OVERDOSE [None]
  - SUICIDE ATTEMPT [None]
